FAERS Safety Report 13554622 (Version 1)
Quarter: 2017Q2

REPORT INFORMATION
  Report Type: Spontaneous
  Country: US (occurrence: US)
  Receive Date: 20170517
  Receipt Date: 20170517
  Transmission Date: 20170830
  Serious: Yes (Hospitalization)
  Sender: FDA-Public Use
  Company Number: US-PARI RESPIRATORY EQUIPMENT, INC.-2017PAR00012

PATIENT
  Age: 58 Year
  Sex: Male

DRUGS (8)
  1. TOBRAMYCIN. [Suspect]
     Active Substance: TOBRAMYCIN
     Indication: ARTHRITIS BACTERIAL
     Dosage: 7.2 G, ONCE
     Route: 014
     Dates: start: 201405, end: 2014
  2. LEVOFLOXACIN. [Concomitant]
     Active Substance: LEVOFLOXACIN
     Dosage: 750 MG, 1X/DAY X 6 WEEKS
     Route: 048
  3. VANCOMYCIN [Concomitant]
     Active Substance: VANCOMYCIN
     Dosage: 6.0 G, ONCE
     Route: 014
  4. COBALT HV [Suspect]
     Active Substance: DEVICE
     Dosage: 2.5 PACKS, ONCE
     Route: 014
     Dates: start: 2014
  5. PIPERACILLIN AND TAZOBACTAM [Concomitant]
     Active Substance: PIPERACILLIN SODIUM\TAZOBACTAM SODIUM
     Route: 065
  6. PROSTALAC [Concomitant]
     Route: 014
  7. VANCOMYCIN [Concomitant]
     Active Substance: VANCOMYCIN
     Dosage: UNK
     Route: 065
  8. COBALT HV [Suspect]
     Active Substance: DEVICE
     Indication: HIP SURGERY
     Dosage: 2 PACKS, ONCE
     Route: 014
     Dates: start: 201405, end: 2014

REACTIONS (7)
  - Tubulointerstitial nephritis [None]
  - Haemodialysis [None]
  - Rash [None]
  - Osteonecrosis [None]
  - Renal tubular necrosis [None]
  - Acute kidney injury [Recovered/Resolved]
  - Toxicity to various agents [None]

NARRATIVE: CASE EVENT DATE: 201405
